FAERS Safety Report 10029747 (Version 1)
Quarter: 2014Q1

REPORT INFORMATION
  Report Type: Spontaneous
  Country: US (occurrence: None)
  Receive Date: 20140321
  Receipt Date: 20140321
  Transmission Date: 20141002
  Serious: Yes (Hospitalization)
  Sender: FDA-Public Use
  Company Number: None

PATIENT
  Age: 51 Year
  Sex: Male

DRUGS (6)
  1. IMBRUVICA [Suspect]
     Indication: MANTLE CELL LYMPHOMA
     Route: 048
     Dates: start: 20131231
  2. VALACYCLOVIR [Concomitant]
  3. ALLOPURINOL [Concomitant]
  4. PREDNISONE [Concomitant]
  5. NEXIUM [Concomitant]
  6. DOXYCYCLINE [Concomitant]

REACTIONS (2)
  - Chest pain [None]
  - Dyspnoea [None]
